FAERS Safety Report 15334958 (Version 2)
Quarter: 2018Q4

REPORT INFORMATION
  Report Type: Spontaneous
  Country: US (occurrence: US)
  Receive Date: 20180830
  Receipt Date: 20181012
  Transmission Date: 20190204
  Serious: Yes (Other)
  Sender: FDA-Public Use
  Company Number: US-MYLANLABS-2018M1064496

PATIENT
  Sex: Male
  Weight: 14.4 kg

DRUGS (2)
  1. EPIPEN JR [Suspect]
     Active Substance: EPINEPHRINE
     Indication: FOOD ALLERGY
     Dosage: 0.15 MG, ONCE
     Route: 030
     Dates: start: 20160327, end: 20160327
  2. EPIPEN JR [Suspect]
     Active Substance: EPINEPHRINE
     Indication: URTICARIA

REACTIONS (3)
  - Injury associated with device [Unknown]
  - Device failure [Unknown]
  - Needle issue [Unknown]

NARRATIVE: CASE EVENT DATE: 2016
